FAERS Safety Report 6648478-7 (Version None)
Quarter: 2010Q1

REPORT INFORMATION
  Report Type: 
  Country: None (occurrence: None)
  Receive Date: 20100324
  Receipt Date: 20100317
  Transmission Date: 20100710
  Serious: Yes (Death)
  Sender: FDA-Public Use
  Company Number: DE-BAYER-201019371GPV

PATIENT
  Age: 73 Year
  Sex: Male
  Weight: 85 kg

DRUGS (1)
  1. AVELOX [Suspect]
     Indication: DRUG USE FOR UNKNOWN INDICATION
     Dates: start: 20100305

REACTIONS (7)
  - BLOOD GLUCOSE INCREASED [None]
  - CHILLS [None]
  - DEATH [None]
  - FATIGUE [None]
  - FULL BLOOD COUNT ABNORMAL [None]
  - PYREXIA [None]
  - RASH [None]
